FAERS Safety Report 7525223-4 (Version None)
Quarter: 2011Q2

REPORT INFORMATION
  Report Type: 
  Country: None (occurrence: None)
  Receive Date: 20110606
  Receipt Date: 20110520
  Transmission Date: 20111010
  Serious: Yes (Hospitalization, Other)
  Sender: FDA-Public Use
  Company Number: IT-BAYER-201031449GPV

PATIENT
  Age: 57 Year
  Sex: Male
  Weight: 85 kg

DRUGS (12)
  1. PLACEBO [Suspect]
     Dosage: UNK UNK, QD
     Dates: start: 20100409, end: 20100503
  2. PLACEBO [Suspect]
     Dosage: UNK UNK, QD
     Dates: start: 20100504, end: 20100527
  3. SORAFENIB (RAF KINASE INHIBITOR) [Suspect]
     Dosage: 400 MG, BID
     Dates: start: 20100312, end: 20100408
  4. CIBADREX [Concomitant]
     Indication: HYPERTENSION
     Dosage: AS USED DOSE: 10+12.5 MG
     Dates: end: 20100721
  5. DIAMICRON [Concomitant]
     Indication: DIABETES MELLITUS
     Dosage: 30 MG, UNK
     Dates: end: 20100718
  6. SORAFENIB (RAF KINASE INHIBITOR) [Suspect]
     Dosage: 400 MG, BID
     Dates: start: 20100409, end: 20100503
  7. SORAFENIB (RAF KINASE INHIBITOR) [Suspect]
     Dosage: 400 MG, BID
     Dates: start: 20100504, end: 20100527
  8. PLACEBO [Suspect]
     Indication: HEPATIC NEOPLASM MALIGNANT
     Dosage: UNK UNK, QD
     Dates: start: 20100218, end: 20100311
  9. PLACEBO [Suspect]
     Dosage: UNK UNK, QD
     Dates: start: 20100312, end: 20100408
  10. SORAFENIB (RAF KINASE INHIBITOR) [Suspect]
     Indication: HEPATIC NEOPLASM MALIGNANT
     Dosage: 400 MG, BID
     Dates: start: 20100218, end: 20100311
  11. SORAFENIB (RAF KINASE INHIBITOR) [Suspect]
     Dosage: 400 MG, BID
     Dates: start: 20100528, end: 20100621
  12. PLACEBO [Suspect]
     Dosage: UNK UNK, QD
     Dates: start: 20100528, end: 20100621

REACTIONS (9)
  - BLOOD ALBUMIN DECREASED [None]
  - OEDEMA PERIPHERAL [None]
  - BLOOD ALKALINE PHOSPHATASE INCREASED [None]
  - BLOOD BILIRUBIN INCREASED [None]
  - ABDOMINAL PAIN [None]
  - HYPERKALAEMIA [None]
  - ERYSIPELAS [None]
  - FATIGUE [None]
  - ASCITES [None]
